FAERS Safety Report 18306892 (Version 1)
Quarter: 2020Q3

REPORT INFORMATION
  Report Type: Spontaneous
  Country: US (occurrence: US)
  Receive Date: 20200924
  Receipt Date: 20200924
  Transmission Date: 20201103
  Serious: No
  Sender: FDA-Public Use
  Company Number: US-BAUSCH-BL-2020-022774

PATIENT
  Sex: Female

DRUGS (3)
  1. JUBLIA [Suspect]
     Active Substance: EFINACONAZOLE
     Indication: NAIL DISCOLOURATION
     Route: 061
     Dates: start: 201902, end: 201906
  2. JUBLIA [Suspect]
     Active Substance: EFINACONAZOLE
     Indication: NAIL DISORDER
  3. JUBLIA [Suspect]
     Active Substance: EFINACONAZOLE
     Indication: PRODUCT USE IN UNAPPROVED INDICATION

REACTIONS (3)
  - Therapeutic product effect incomplete [Unknown]
  - Product use in unapproved indication [Unknown]
  - Product prescribing error [Unknown]

NARRATIVE: CASE EVENT DATE: 201902
